FAERS Safety Report 16255496 (Version 2)
Quarter: 2019Q2

REPORT INFORMATION
  Report Type: Spontaneous
  Country: US (occurrence: US)
  Receive Date: 20190430
  Receipt Date: 20190506
  Transmission Date: 20190711
  Serious: Yes (Other)
  Sender: FDA-Public Use
  Company Number: US-DRREDDYS-USA/USA/19/0109895

PATIENT
  Age: 58 Year
  Sex: Male

DRUGS (5)
  1. THYMOGLOBULIN [Suspect]
     Active Substance: LAPINE T-LYMPHOCYTE IMMUNE GLOBULIN
     Indication: IMMUNOSUPPRESSANT DRUG THERAPY
  2. BASILIXIMAB [Suspect]
     Active Substance: BASILIXIMAB
     Indication: IMMUNOSUPPRESSANT DRUG THERAPY
  3. PENTOBARBITAL. [Interacting]
     Active Substance: PENTOBARBITAL
     Indication: EPILEPSY
  4. SIROLIMUS. [Suspect]
     Active Substance: SIROLIMUS
     Indication: IMMUNOSUPPRESSANT DRUG THERAPY
  5. IMMUNOGLOBULIN IV [Suspect]
     Active Substance: HUMAN IMMUNOGLOBULIN G
     Indication: IMMUNOSUPPRESSANT DRUG THERAPY
     Route: 042

REACTIONS (6)
  - Drug interaction [Unknown]
  - Abdominal compartment syndrome [Unknown]
  - Renal transplant failure [Unknown]
  - Posterior reversible encephalopathy syndrome [Unknown]
  - Right ventricular failure [Unknown]
  - Left ventricular dysfunction [Recovered/Resolved]
